FAERS Safety Report 11610415 (Version 3)
Quarter: 2016Q2

REPORT INFORMATION
  Report Type: Spontaneous
  Country: IN (occurrence: IN)
  Receive Date: 20151008
  Receipt Date: 20160519
  Transmission Date: 20160815
  Serious: Yes (Death, Other)
  Sender: FDA-Public Use
  Company Number: IN-PFIZER INC-2015251894

PATIENT
  Age: 66 Year
  Sex: Male

DRUGS (1)
  1. SUTENT [Suspect]
     Active Substance: SUNITINIB MALATE
     Indication: METASTATIC RENAL CELL CARCINOMA
     Dosage: 50 MG, 1X/DAY
     Route: 048
     Dates: start: 20150709, end: 201602

REACTIONS (12)
  - Vomiting [Unknown]
  - Blood pressure decreased [Unknown]
  - Cardiac arrest [Unknown]
  - Erythema [Not Recovered/Not Resolved]
  - Erythema [Not Recovered/Not Resolved]
  - Pruritus [Not Recovered/Not Resolved]
  - Gastric disorder [Unknown]
  - Metastatic renal cell carcinoma [Fatal]
  - Dysgeusia [Not Recovered/Not Resolved]
  - Disease progression [Fatal]
  - Ascites [Recovered/Resolved]
  - Oropharyngeal pain [Recovered/Resolved]

NARRATIVE: CASE EVENT DATE: 2015
